FAERS Safety Report 17038523 (Version 3)
Quarter: 2019Q4

REPORT INFORMATION
  Report Type: Report from Study
  Country: US (occurrence: US)
  Receive Date: 20191115
  Receipt Date: 20191217
  Transmission Date: 20200122
  Serious: Yes (Hospitalization, Other)
  Sender: FDA-Public Use
  Company Number: US-TAIHO ONCOLOGY  INC-EU-2019-03759

PATIENT
  Age: 67 Year
  Sex: Male

DRUGS (6)
  1. MORPHINE [Concomitant]
     Active Substance: MORPHINE
     Dosage: NI
  2. STOOL SOFTENER (DOCUSATE) [Concomitant]
     Active Substance: DOCUSATE
     Dosage: NI
  3. DOXYCYCLINE HYDROCHLORIDE [Concomitant]
     Active Substance: DOXYCYCLINE HYDROCHLORIDE
     Dosage: NI
  4. FUROSEMIDE. [Concomitant]
     Active Substance: FUROSEMIDE
     Dosage: NI
  5. LONSURF [Suspect]
     Active Substance: TIPIRACIL HYDROCHLORIDE\TRIFLURIDINE
     Indication: RECTAL CANCER
     Dosage: CURRENT CYCLE UNKNOWN
     Route: 048
     Dates: start: 20190216
  6. TAMSULOSIN [Concomitant]
     Active Substance: TAMSULOSIN
     Dosage: NI

REACTIONS (6)
  - Abdominal pain lower [Not Recovered/Not Resolved]
  - Urinary tract infection [Unknown]
  - Nephrolithiasis [Unknown]
  - Kidney infection [Not Recovered/Not Resolved]
  - Urethral obstruction [Not Recovered/Not Resolved]
  - Renal neoplasm [Unknown]

NARRATIVE: CASE EVENT DATE: 2019
